FAERS Safety Report 5939673-0 (Version None)
Quarter: 2008Q4

REPORT INFORMATION
  Report Type: 
  Country: None (occurrence: None)
  Receive Date: 20081030
  Receipt Date: 20081030
  Transmission Date: 20090506
  Serious: Yes (Hospitalization)
  Sender: FDA-Public Use
  Company Number: None

PATIENT
  Age: 88 Year
  Sex: Male
  Weight: 170 kg

DRUGS (2)
  1. ZAROXOLYN [Suspect]
     Indication: OEDEMA
     Dosage: 5 MG EVERY DAY PO
     Route: 048
  2. LASIX [Suspect]
     Dosage: 40 MG DAILY PO
     Route: 048

REACTIONS (2)
  - DEHYDRATION [None]
  - SYNCOPE [None]
